FAERS Safety Report 25321955 (Version 1)
Quarter: 2025Q2

REPORT INFORMATION
  Report Type: Spontaneous
  Country: US (occurrence: US)
  Receive Date: 20250516
  Receipt Date: 20250516
  Transmission Date: 20250716
  Serious: No
  Sender: DOHMEN
  Company Number: US-PROTEGA PHARMACEUTICALS, LLC-2025PRO000002

PATIENT

DRUGS (1)
  1. ROXYBOND [Suspect]
     Active Substance: OXYCODONE HYDROCHLORIDE
     Indication: Product used for unknown indication
     Route: 065

REACTIONS (1)
  - Therapeutic product effect delayed [Unknown]
